FAERS Safety Report 7071866-4 (Version None)
Quarter: 2010Q4

REPORT INFORMATION
  Report Type: 
  Country: None (occurrence: None)
  Receive Date: 20101029
  Receipt Date: 20091028
  Transmission Date: 20110411
  Serious: No
  Sender: FDA-Public Use
  Company Number: A0813816A

PATIENT
  Age: 70 Year
  Sex: Female

DRUGS (7)
  1. ADVAIR DISKUS 100/50 [Suspect]
     Dosage: 1PUFF TWICE PER DAY
     Route: 055
     Dates: start: 20090501
  2. PLAVIX [Concomitant]
  3. ACTOS [Concomitant]
  4. CRESTOR [Concomitant]
  5. BENICAR [Concomitant]
  6. FISH OIL [Concomitant]
  7. ALENDRONATE SODIUM [Concomitant]

REACTIONS (2)
  - DYSGEUSIA [None]
  - DYSPNOEA [None]
